FAERS Safety Report 9574715 (Version 1)
Quarter: 2013Q4

REPORT INFORMATION
  Report Type: Spontaneous
  Country: US (occurrence: US)
  Receive Date: 20131001
  Receipt Date: 20131001
  Transmission Date: 20140711
  Serious: No
  Sender: FDA-Public Use
  Company Number: US-PURDUE-USA-2012-0084739

PATIENT
  Sex: Female

DRUGS (4)
  1. BUTRANS [Suspect]
     Indication: PAIN
     Dosage: 10 MCG/HR, UNK
     Route: 062
  2. BUTRANS [Suspect]
     Dosage: 20 MCG/HR, AND 20 MCG/HR [TOTAL 40 MCG/HR]
     Route: 062
  3. BUTRANS [Suspect]
     Dosage: 20 MCG/HR, AND 10 MCG/HR [TOTAL 30 MCG/HR]
     Route: 062
  4. BUTRANS [Suspect]
     Dosage: 10 MCG/HR, AND 20 MCG/HR [TOTAL 30 MCG/HR]
     Route: 062

REACTIONS (4)
  - Extra dose administered [Unknown]
  - Somnolence [Unknown]
  - Dyspnoea [Unknown]
  - Pain [Unknown]
